FAERS Safety Report 14264808 (Version 1)
Quarter: 2017Q4

REPORT INFORMATION
  Report Type: Report from Study
  Country: NL (occurrence: NL)
  Receive Date: 20171208
  Receipt Date: 20171208
  Transmission Date: 20180321
  Serious: Yes (Hospitalization)
  Sender: FDA-Public Use
  Company Number: NL-SHIRE-NL201731911

PATIENT

DRUGS (1)
  1. HYQVIA [Suspect]
     Active Substance: HUMAN IMMUNOGLOBULIN G\HYALURONIDASE RECOMBINANT HUMAN
     Indication: CHRONIC LYMPHOCYTIC LEUKAEMIA
     Dosage: 10 G, 1X/WEEK
     Route: 065
     Dates: start: 2015

REACTIONS (5)
  - Cough [Recovering/Resolving]
  - Adverse drug reaction [Recovering/Resolving]
  - Oropharyngeal pain [Recovering/Resolving]
  - Off label use [Unknown]
  - Dysphagia [Recovering/Resolving]
